FAERS Safety Report 23378594 (Version 1)
Quarter: 2024Q1

REPORT INFORMATION
  Report Type: Spontaneous
  Country: JP (occurrence: JP)
  Receive Date: 20240108
  Receipt Date: 20240108
  Transmission Date: 20240410
  Serious: Yes (Hospitalization, Other)
  Sender: FDA-Public Use
  Company Number: JP-MLMSERVICE-20231220-4733496-1

PATIENT
  Age: 52 Year
  Sex: Female

DRUGS (3)
  1. ESTROGENS, CONJUGATED [Suspect]
     Active Substance: ESTROGENS, CONJUGATED
     Indication: Hormone therapy
     Dosage: 5.0 MG, DAILY, BY AN UNOFFICIAL IMPORT FOR 8 YEARS
  2. ETHINYL ESTRADIOL [Suspect]
     Active Substance: ETHINYL ESTRADIOL
     Indication: Hormone therapy
     Dosage: 0.1 MG, DAILY, BY AN UNOFFICIAL IMPORT FOR 8 YEARS
  3. PROGESTERONE [Suspect]
     Active Substance: PROGESTERONE
     Indication: Hormone therapy
     Dosage: 100 MG, DAILY, BY AN UNOFFICIAL IMPORT FOR 8 YEARS

REACTIONS (8)
  - Intentional overdose [Unknown]
  - Arterial thrombosis [Recovering/Resolving]
  - Venous thrombosis [Recovering/Resolving]
  - Splenic infarction [Recovering/Resolving]
  - Aortic thrombosis [Recovering/Resolving]
  - Peripheral artery thrombosis [Recovering/Resolving]
  - Pulmonary artery thrombosis [Recovering/Resolving]
  - Peripheral artery thrombosis [Recovering/Resolving]
